FAERS Safety Report 8729610 (Version 2)
Quarter: 2015Q2

REPORT INFORMATION
  Report Type: Report from Study
  Country: US (occurrence: US)
  Receive Date: 20120817
  Receipt Date: 20150407
  Transmission Date: 20150821
  Serious: Yes (Other)
  Sender: FDA-Public Use
  Company Number: US-ROCHE-1101269

PATIENT
  Sex: Male

DRUGS (3)
  1. PROCARDIA XL [Concomitant]
     Active Substance: NIFEDIPINE
     Route: 065
  2. ISMO [Concomitant]
     Active Substance: ISOSORBIDE MONONITRATE
     Route: 065
  3. ACTIVASE [Suspect]
     Active Substance: ALTEPLASE
     Indication: ACUTE MYOCARDIAL INFARCTION
     Route: 065

REACTIONS (3)
  - Blood creatine phosphokinase increased [Unknown]
  - Hiccups [Recovering/Resolving]
  - Musculoskeletal discomfort [Unknown]
